FAERS Safety Report 7473100-X (Version None)
Quarter: 2011Q2

REPORT INFORMATION
  Report Type: 
  Country: None (occurrence: None)
  Receive Date: 20110511
  Receipt Date: 20110506
  Transmission Date: 20111010
  Serious: Yes (Hospitalization)
  Sender: FDA-Public Use
  Company Number: US-ROCHE-776006

PATIENT
  Age: 57 Year
  Sex: Female
  Weight: 68 kg

DRUGS (12)
  1. AVASTIN [Suspect]
     Indication: GLIOBLASTOMA
     Dosage: FREQUENCY:DAY 1 OF WEEKS 4 AND 6,AT BEGINNING OF WEEK 2, DOSE:BLINDED, LAST DOSE:07 APR 2011
     Route: 042
     Dates: start: 20100701
  2. TRAZODONE HCL [Concomitant]
  3. MICARDIS [Concomitant]
  4. CIPRO [Concomitant]
  5. CLONAZEPAM [Concomitant]
  6. TEMOZOLOMIDE [Suspect]
     Indication: GLIOBLASTOMA
     Dosage: CYCLE-6 WEEKS:75 MG/M2 DAILY,CYCLE-4 WEEKS:150-200MG/M2 ON DAYS 1-5,TOTAL DOSE:1625 MG
     Route: 048
     Dates: start: 20100701
  7. LIPITOR [Concomitant]
  8. LORAZEPAM [Concomitant]
  9. ONDANSETRON [Concomitant]
  10. PRILOSEC [Concomitant]
  11. IBUPROFEN [Concomitant]
  12. ESTRADIOL [Concomitant]

REACTIONS (1)
  - RENAL FAILURE ACUTE [None]
